FAERS Safety Report 5448670-3 (Version None)
Quarter: 2007Q3

REPORT INFORMATION
  Report Type: 
  Country: None (occurrence: None)
  Receive Date: 20070911
  Receipt Date: 20070905
  Transmission Date: 20080115
  Serious: Yes (Hospitalization)
  Sender: FDA-Public Use
  Company Number: DE-AVENTIS-200712299DE

PATIENT
  Age: 36 Year
  Sex: Female
  Weight: 43 kg

DRUGS (1)
  1. DOCETAXEL [Suspect]
     Route: 042
     Dates: start: 20070707, end: 20070707

REACTIONS (1)
  - RENAL FAILURE [None]
